FAERS Safety Report 5385468-9 (Version None)
Quarter: 2007Q3

REPORT INFORMATION
  Report Type: 
  Country: None (occurrence: None)
  Receive Date: 20070706
  Receipt Date: 20070706
  Transmission Date: 20080115
  Serious: Yes (Life-Threatening, Hospitalization)
  Sender: FDA-Public Use
  Company Number: None

PATIENT
  Sex: Female
  Weight: 46.7205 kg

DRUGS (1)
  1. REMODULIN [Suspect]
     Indication: PULMONARY HYPERTENSION
     Dosage: 90 NG/KG/MIN CONT IV
     Route: 042

REACTIONS (10)
  - ACINETOBACTER INFECTION [None]
  - BLOOD CULTURE POSITIVE [None]
  - CATHETER SITE INFECTION [None]
  - CONDITION AGGRAVATED [None]
  - PNEUMONIA KLEBSIELLA [None]
  - PSEUDOMONAS INFECTION [None]
  - PULMONARY HYPERTENSION [None]
  - SHOCK [None]
  - STENOTROPHOMONAS INFECTION [None]
  - SYNCOPE [None]
